FAERS Safety Report 9300002 (Version 1)
Quarter: 2013Q2

REPORT INFORMATION
  Report Type: Spontaneous
  Country: US (occurrence: US)
  Receive Date: 20130521
  Receipt Date: 20130521
  Transmission Date: 20140414
  Serious: Yes (Hospitalization)
  Sender: FDA-Public Use
  Company Number: US-BAYER-2013-061881

PATIENT
  Age: 31 Year
  Sex: Female
  Weight: 78 kg

DRUGS (11)
  1. YAZ [Suspect]
     Indication: MENSTRUAL CYCLE MANAGEMENT
  2. GIANVI [Suspect]
  3. YASMIN [Suspect]
  4. OMEPRAZOLE [Concomitant]
     Dosage: 40 MG, DAILY
  5. VALIUM [Concomitant]
     Indication: HEADACHE
     Dosage: UNK, AS NEEDED
  6. PERCOCET [Concomitant]
     Indication: HEADACHE
     Dosage: UNK, AS NEEDED
  7. ADVIL [Concomitant]
     Dosage: 6 PER TIME
     Dates: start: 20111102
  8. CAFFEINE [Concomitant]
  9. VICODIN [Concomitant]
  10. FIORICET [Concomitant]
  11. ANALGESICS [Concomitant]
     Route: 042

REACTIONS (1)
  - Pulmonary embolism [None]
